FAERS Safety Report 7124249-2 (Version None)
Quarter: 2010Q4

REPORT INFORMATION
  Report Type: 
  Country: None (occurrence: None)
  Receive Date: 20101126
  Receipt Date: 20101104
  Transmission Date: 20110411
  Serious: Yes (Hospitalization)
  Sender: FDA-Public Use
  Company Number: CHPA2010US17737

PATIENT
  Sex: Female

DRUGS (1)
  1. MAALOX ANTACID LIQUID - UNKNOWN (NCH) [Suspect]
     Dosage: UNK, UNK
     Route: 065
     Dates: start: 20090101, end: 20090101

REACTIONS (3)
  - CHEMOTHERAPY [None]
  - INCORRECT DOSE ADMINISTERED [None]
  - OVERDOSE [None]
